FAERS Safety Report 7049591-5 (Version None)
Quarter: 2010Q4

REPORT INFORMATION
  Report Type: 
  Country: None (occurrence: None)
  Receive Date: 20101018
  Receipt Date: 20100519
  Transmission Date: 20110411
  Serious: Yes (Hospitalization)
  Sender: FDA-Public Use
  Company Number: US-BAYER-201012031NA

PATIENT
  Age: 18 Year
  Sex: Female
  Weight: 59 kg

DRUGS (9)
  1. YASMIN [Suspect]
     Indication: PREMENSTRUAL SYNDROME
     Route: 048
  2. OCELLA [Suspect]
     Indication: PREMENSTRUAL SYNDROME
     Route: 048
  3. NORTRIPTYLINE HCL [Concomitant]
     Dates: start: 20070110, end: 20080101
  4. ZOMIG-ZMT [Concomitant]
     Dates: start: 20070110
  5. PENICILLIN VK [Concomitant]
     Dates: start: 20070315, end: 20070322
  6. IBUPROFEN [Concomitant]
     Dates: start: 20070315, end: 20070318
  7. HYDROCODONE BITARTRATE AND ACETAMINOPHEN [Concomitant]
     Dates: start: 20071201, end: 20071203
  8. PREDNISONE [Concomitant]
     Dates: start: 20071201, end: 20071205
  9. OXYCODONE HCL AND ACETAMINOPHEN [Concomitant]
     Dosage: 5/325MG
     Dates: end: 20080404

REACTIONS (6)
  - ABDOMINAL PAIN [None]
  - CHOLECYSTITIS CHRONIC [None]
  - CHOLELITHIASIS [None]
  - NAUSEA [None]
  - PANCREATITIS [None]
  - VOMITING [None]
